FAERS Safety Report 8894591 (Version 5)
Quarter: 2013Q2

REPORT INFORMATION
  Report Type: Spontaneous
  Country: US (occurrence: US)
  Receive Date: 20121108
  Receipt Date: 20130403
  Transmission Date: 20140414
  Serious: Yes (Other)
  Sender: FDA-Public Use
  Company Number: US-ASTELLAS-2012US010796

PATIENT
  Age: 89 Year
  Sex: Female
  Weight: 54 kg

DRUGS (4)
  1. VESICARE [Suspect]
     Indication: URINARY INCONTINENCE
     Dosage: 10 MG, UID/QD
     Route: 048
  2. VESICARE [Suspect]
     Dosage: 5 MG, UNKNOWN/D
     Route: 048
  3. ANTIHYPERTENSIVES [Concomitant]
     Indication: HYPERTENSION
     Dosage: UNK
     Route: 065
  4. OCUVITE                            /01053801/ [Concomitant]
     Indication: EYE DISORDER
     Dosage: 1 DF, UID/QD
     Route: 065

REACTIONS (7)
  - Blindness [Unknown]
  - Goitre [Unknown]
  - Colon cancer [Unknown]
  - Macular degeneration [Unknown]
  - Hypertension [Unknown]
  - Musculoskeletal pain [Unknown]
  - Constipation [Unknown]
